FAERS Safety Report 15739043 (Version 1)
Quarter: 2018Q4

REPORT INFORMATION
  Report Type: Spontaneous
  Country: PL (occurrence: PL)
  Receive Date: 20181219
  Receipt Date: 20181219
  Transmission Date: 20190205
  Serious: Yes (Death, Other)
  Sender: FDA-Public Use
  Company Number: PL-ASTRAZENECA-2018SF63718

PATIENT
  Age: 68 Year
  Sex: Female

DRUGS (2)
  1. LYNPARZA [Suspect]
     Active Substance: OLAPARIB
     Route: 048
  2. LYNPARZA [Suspect]
     Active Substance: OLAPARIB
     Route: 048

REACTIONS (7)
  - Death [Fatal]
  - Myelodysplastic syndrome [Unknown]
  - Fatigue [Unknown]
  - Neutropenia [Unknown]
  - Asthenia [Unknown]
  - Malignant neoplasm progression [Unknown]
  - Anaemia [Unknown]
